FAERS Safety Report 16802008 (Version 1)
Quarter: 2019Q3

REPORT INFORMATION
  Report Type: Report from Study
  Country: US (occurrence: US)
  Receive Date: 20190912
  Receipt Date: 20190912
  Transmission Date: 20191005
  Serious: Yes (Hospitalization)
  Sender: FDA-Public Use
  Company Number: US-GILEAD-2019-0427796

PATIENT
  Age: 58 Year
  Sex: Female

DRUGS (3)
  1. RANOLAZINE. [Suspect]
     Active Substance: RANOLAZINE
     Dosage: 1 HALF OF 1000 MG TABLET, ONCE
     Route: 048
     Dates: start: 20190905, end: 20190905
  2. RANOLAZINE. [Suspect]
     Active Substance: RANOLAZINE
     Indication: ANGINA PECTORIS
     Dosage: 500 MG, BID
     Route: 048
     Dates: start: 2019
  3. RANOLAZINE. [Suspect]
     Active Substance: RANOLAZINE
     Dosage: 1 HALF OF 1000 MG TABLET, ONCE
     Route: 048
     Dates: start: 20190906, end: 20190906

REACTIONS (7)
  - Nausea [Unknown]
  - Intentional product misuse [Unknown]
  - Abdominal pain upper [Unknown]
  - Blood pressure increased [Unknown]
  - Hyperhidrosis [Unknown]
  - Headache [Unknown]
  - Product use issue [Not Recovered/Not Resolved]

NARRATIVE: CASE EVENT DATE: 20190905
